FAERS Safety Report 10226335 (Version 1)
Quarter: 2014Q2

REPORT INFORMATION
  Report Type: Spontaneous
  Country: DE (occurrence: DE)
  Receive Date: 20140609
  Receipt Date: 20140609
  Transmission Date: 20141212
  Serious: Yes (Other)
  Sender: FDA-Public Use
  Company Number: GXKR2014DE002199

PATIENT
  Age: 80 Year
  Sex: Male

DRUGS (1)
  1. AMOXI 1A PHARMA [Suspect]
     Indication: OSTEITIS
     Dosage: 1000 MG, TID
     Route: 048
     Dates: start: 20140523, end: 20140529

REACTIONS (7)
  - Pharyngeal oedema [Unknown]
  - Gingival oedema [Unknown]
  - Dysgeusia [Unknown]
  - Dry mouth [Unknown]
  - Rash morbilliform [Unknown]
  - Oral fungal infection [Unknown]
  - Rash generalised [Unknown]
